FAERS Safety Report 23345828 (Version 1)
Quarter: 2023Q4

REPORT INFORMATION
  Report Type: Spontaneous
  Country: US (occurrence: None)
  Receive Date: 20231227
  Receipt Date: 20231227
  Transmission Date: 20240110
  Serious: Yes (Death)
  Sender: FDA-Public Use
  Company Number: None

PATIENT
  Sex: Female

DRUGS (11)
  1. COLISTIMETHATE SODIUM [Suspect]
     Active Substance: COLISTIMETHATE SODIUM
     Indication: Bacterial infection
     Dosage: MIX 6 ML OF SALINE WITH 150 MG OF COLISTIMETHATE AND NEBULIZE 1/2 IN THE MORNING AND 1/2 IN THE ?EVE
     Dates: start: 20220317, end: 20231220
  2. ALBUTEROL [Concomitant]
     Active Substance: ALBUTEROL
  3. AMITRIPTYLIN [Concomitant]
  4. ENTRESTO [Concomitant]
     Active Substance: SACUBITRIL\VALSARTAN
  5. FASENRA [Concomitant]
     Active Substance: BENRALIZUMAB
  6. GABAPENTIN [Concomitant]
  7. HYDROCORT CRE [Concomitant]
  8. OXYCODONE [Concomitant]
     Active Substance: OXYCODONE
  9. SOD CHL [Concomitant]
  10. SPIRONOLACTONE [Concomitant]
     Active Substance: SPIRONOLACTONE
  11. VITAMIN D [Concomitant]
     Active Substance: VITAMIN D NOS

REACTIONS (1)
  - Death [None]
